FAERS Safety Report 19607753 (Version 1)
Quarter: 2021Q3

REPORT INFORMATION
  Report Type: Other
  Country: US (occurrence: US)
  Receive Date: 20210726
  Receipt Date: 20210726
  Transmission Date: 20211014
  Serious: Yes (Other)
  Sender: FDA-Public Use
  Company Number: US-ROCHE-2875312

PATIENT
  Age: 78 Year
  Sex: Male

DRUGS (3)
  1. TRASTUZUMAB. [Concomitant]
     Active Substance: TRASTUZUMAB
     Route: 065
  2. TRASTUZUMAB EMTANSINE [Suspect]
     Active Substance: ADO-TRASTUZUMAB EMTANSINE
     Indication: MUCOEPIDERMOID CARCINOMA
     Route: 065
  3. PERTUZUMAB. [Concomitant]
     Active Substance: PERTUZUMAB

REACTIONS (1)
  - Jaundice [Unknown]
